FAERS Safety Report 16846778 (Version 8)
Quarter: 2022Q3

REPORT INFORMATION
  Report Type: Report from Study
  Country: DE (occurrence: DE)
  Receive Date: 20190924
  Receipt Date: 20220719
  Transmission Date: 20221026
  Serious: Yes (Hospitalization)
  Sender: FDA-Public Use
  Company Number: PHHY2019DE220486

PATIENT
  Age: 6 Year
  Sex: Female
  Weight: 19.3 kg

DRUGS (5)
  1. ILARIS [Suspect]
     Active Substance: CANAKINUMAB
     Indication: Familial mediterranean fever
     Dosage: 2 MG/KG
     Route: 058
     Dates: start: 20181102
  2. ILARIS [Suspect]
     Active Substance: CANAKINUMAB
     Dosage: 2 MG/KG
     Route: 058
     Dates: start: 20181203, end: 20220421
  3. ILARIS [Suspect]
     Active Substance: CANAKINUMAB
     Dosage: 4 MG
     Route: 058
     Dates: start: 20190603
  4. COLCHICINE [Concomitant]
     Active Substance: COLCHICINE
     Indication: Familial mediterranean fever
     Dosage: 1 MG, QD
     Route: 048
     Dates: start: 20170131
  5. COLCHICINE [Concomitant]
     Active Substance: COLCHICINE
     Dosage: UNK
     Route: 048
     Dates: start: 20170131

REACTIONS (2)
  - Tonsillitis [Recovered/Resolved]
  - Concomitant disease aggravated [Unknown]
